FAERS Safety Report 4597579-6 (Version None)
Quarter: 2005Q1

REPORT INFORMATION
  Report Type: 
  Country: None (occurrence: None)
  Receive Date: 20050303
  Receipt Date: 20050217
  Transmission Date: 20050727
  Serious: Yes (Death)
  Sender: FDA-Public Use
  Company Number: FR-JNJFOC-20050204725

PATIENT
  Age: 72 Year
  Sex: Male

DRUGS (4)
  1. RISPERDAL [Suspect]
     Route: 049
  2. RISPERDAL [Suspect]
     Route: 049
  3. DEPAMIDE [Concomitant]
  4. SCOPOLAMINE [Concomitant]

REACTIONS (5)
  - DROOLING [None]
  - LARYNGEAL DISORDER [None]
  - MALNUTRITION [None]
  - SHOCK [None]
  - WEIGHT DECREASED [None]
